FAERS Safety Report 20065685 (Version 2)
Quarter: 2021Q4

REPORT INFORMATION
  Report Type: Report from Study
  Country: PA (occurrence: PA)
  Receive Date: 20211113
  Receipt Date: 20211201
  Transmission Date: 20220303
  Serious: Yes (Other)
  Sender: FDA-Public Use
  Company Number: PA-NOVARTISPH-NVSC2021PA208105

PATIENT
  Sex: Female

DRUGS (7)
  1. KISQALI [Suspect]
     Active Substance: RIBOCICLIB
     Indication: Breast cancer metastatic
     Dosage: UNK
     Route: 065
     Dates: start: 202108
  2. KISQALI [Suspect]
     Active Substance: RIBOCICLIB
     Dosage: 200 MG, QD
     Route: 048
     Dates: start: 202109, end: 202111
  3. ARIMIDEX [Concomitant]
     Active Substance: ANASTROZOLE
     Indication: Bone pain
     Dosage: 1 MG
     Route: 065
  4. ARIMIDEX [Concomitant]
     Active Substance: ANASTROZOLE
     Dosage: QD
     Route: 048
     Dates: start: 202108
  5. AMIODARONE [Concomitant]
     Active Substance: AMIODARONE
     Indication: Cardiac disorder
     Dosage: UNK, QD (IN THE MORNING)
     Route: 048
  6. FUROSEMIDE [Concomitant]
     Active Substance: FUROSEMIDE
     Indication: Cardiac disorder
     Dosage: UNK, QD (ONCE A DAY IN THE MORNING)
     Route: 048
  7. TRAMADOL [Concomitant]
     Active Substance: TRAMADOL
     Indication: Bone pain
     Dosage: UNK UNK, Q12H
     Route: 048

REACTIONS (7)
  - Arrhythmia [Unknown]
  - Injury [Unknown]
  - Cardiac disorder [Unknown]
  - Pain [Unknown]
  - Feeling abnormal [Unknown]
  - Arthralgia [Unknown]
  - Product use complaint [Unknown]
